FAERS Safety Report 12966931 (Version 2)
Quarter: 2017Q2

REPORT INFORMATION
  Report Type: Report from Study
  Country: DE (occurrence: DE)
  Receive Date: 20161123
  Receipt Date: 20170427
  Transmission Date: 20170830
  Serious: Yes (Hospitalization)
  Sender: FDA-Public Use
  Company Number: DE-ROCHE-1858082

PATIENT
  Sex: Male

DRUGS (7)
  1. VALPROIC ACID. [Concomitant]
     Active Substance: VALPROIC ACID
     Route: 065
  2. BICANORM [Concomitant]
     Active Substance: SODIUM BICARBONATE
  3. METHOTREXATE. [Suspect]
     Active Substance: METHOTREXATE
     Indication: RHEUMATOID ARTHRITIS
     Route: 065
     Dates: end: 201608
  4. PREDNISOLON [Concomitant]
     Active Substance: PREDNISOLONE
     Route: 065
  5. CHOLECALCIFEROL [Concomitant]
     Active Substance: CHOLECALCIFEROL
     Route: 065
  6. RITUXIMAB [Suspect]
     Active Substance: RITUXIMAB
     Indication: RHEUMATOID ARTHRITIS
     Route: 042
  7. FOLIC ACID. [Concomitant]
     Active Substance: FOLIC ACID
     Route: 065

REACTIONS (2)
  - Urosepsis [Recovered/Resolved]
  - Hydronephrosis [Recovered/Resolved]

NARRATIVE: CASE EVENT DATE: 20160827
